FAERS Safety Report 5599206-8 (Version None)
Quarter: 2008Q1

REPORT INFORMATION
  Report Type: 
  Country: None (occurrence: None)
  Receive Date: 20080122
  Receipt Date: 20080116
  Transmission Date: 20080703
  Serious: Yes (Hospitalization)
  Sender: FDA-Public Use
  Company Number: US-MERCK-0801USA03295

PATIENT
  Age: 68 Year
  Sex: Female

DRUGS (4)
  1. FOSAMAX PLUS D [Suspect]
     Indication: OSTEOPOROSIS
     Route: 048
     Dates: start: 20040101
  2. INSULIN [Concomitant]
     Route: 065
  3. METFORMIN [Concomitant]
     Route: 065
  4. PRILOSEC [Concomitant]
     Route: 065

REACTIONS (3)
  - ABDOMINAL DISTENSION [None]
  - DRUG ADMINISTRATION ERROR [None]
  - PAIN [None]
